FAERS Safety Report 6415782-7 (Version None)
Quarter: 2009Q4

REPORT INFORMATION
  Report Type: 
  Country: None (occurrence: None)
  Receive Date: 20091021
  Receipt Date: 20091013
  Transmission Date: 20100525
  Serious: Yes (Life-Threatening, Hospitalization, Other)
  Sender: FDA-Public Use
  Company Number: WAES 0910USA01720

PATIENT
  Age: 64 Year
  Sex: Female
  Weight: 56.6996 kg

DRUGS (11)
  1. ZETIA [Suspect]
     Indication: BLOOD CHOLESTEROL INCREASED
     Dosage: 10 MG/DAILY/PO
     Route: 048
  2. ADVAIR DISKUS 100/50 [Concomitant]
  3. LEVOXYL [Concomitant]
  4. LIPITOR [Concomitant]
  5. MIACALCIN [Concomitant]
  6. SINGULAIR [Concomitant]
  7. ALPRAZOLAM [Concomitant]
  8. ASPIRIN [Concomitant]
  9. FLUTICASONE PROPIONATE [Concomitant]
  10. MELATONIN [Concomitant]
  11. OMEPRAZOLE [Concomitant]

REACTIONS (5)
  - ANXIETY [None]
  - DEPRESSED MOOD [None]
  - INSOMNIA [None]
  - NIGHTMARE [None]
  - VASCULAR GRAFT [None]
